FAERS Safety Report 10824502 (Version 1)
Quarter: 2015Q1

REPORT INFORMATION
  Report Type: Spontaneous
  Country: IT (occurrence: None)
  Receive Date: 20150213
  Receipt Date: 20150213
  Transmission Date: 20150721
  Serious: Yes (Other)
  Sender: FDA-Public Use
  Company Number: 2014BI070397

PATIENT
  Age: 56 Year
  Sex: Female
  Weight: 80 kg

DRUGS (2)
  1. COPAXONE [Concomitant]
     Active Substance: GLATIRAMER ACETATE
  2. TYSABRI [Suspect]
     Active Substance: NATALIZUMAB
     Indication: MULTIPLE SCLEROSIS
     Route: 042
     Dates: start: 20080905, end: 20140512

REACTIONS (2)
  - Immune reconstitution inflammatory syndrome [None]
  - Progressive multifocal leukoencephalopathy [None]

NARRATIVE: CASE EVENT DATE: 20140618
